FAERS Safety Report 18977940 (Version 5)
Quarter: 2021Q2

REPORT INFORMATION
  Report Type: Spontaneous
  Country: US (occurrence: US)
  Receive Date: 20210307
  Receipt Date: 20210527
  Transmission Date: 20210717
  Serious: Yes (Hospitalization, Other)
  Sender: FDA-Public Use
  Company Number: US-ASTRAZENECA-2021A096877

PATIENT
  Age: 28 Year
  Sex: Female
  Weight: 81.6 kg

DRUGS (19)
  1. SYMBICORT [Suspect]
     Active Substance: BUDESONIDE\FORMOTEROL FUMARATE DIHYDRATE
     Indication: ASTHMA
     Dosage: 160/4.5 MCGS TWO PUFF TWO TIMES A DAY
     Route: 055
     Dates: start: 2006
  2. BENTYL [Concomitant]
     Active Substance: DICYCLOMINE HYDROCHLORIDE
     Indication: CROHN^S DISEASE
     Dosage: 20.0MG AS REQUIRED
     Route: 048
  3. IPATROPIUM [Concomitant]
     Indication: HYPERSENSITIVITY
     Dosage: 5 MG 3M/3ML FREQUENCY GOOD TIMES 1 VIAL MONTHLY BAD TIME 5 VIALS A WEEK
     Route: 045
  4. GABAPENTINE [Concomitant]
     Active Substance: GABAPENTIN
     Indication: PAIN
     Route: 061
  5. LIDOCAINE. [Concomitant]
     Active Substance: LIDOCAINE
     Indication: PAIN
     Route: 061
  6. BREZTRI AEROSPHERE [Suspect]
     Active Substance: BUDESONIDE\FORMOTEROL\GLYCOPYRRONIUM
     Indication: ASTHMA
     Dosage: 160MCG/7.2MCG/4.8MCG, TWO TIMES A DAY
     Route: 055
     Dates: start: 20201130
  7. PROTONIX [Concomitant]
     Active Substance: PANTOPRAZOLE SODIUM
     Indication: CROHN^S DISEASE
     Route: 048
  8. VENTOLIN [Concomitant]
     Active Substance: ALBUTEROL SULFATE
     Indication: HYPERSENSITIVITY
     Dosage: 90.0UG/INHAL AS REQUIRED
     Route: 055
  9. ELIQUIS [Concomitant]
     Active Substance: APIXABAN
     Indication: THROMBOSIS
     Route: 048
     Dates: start: 2018
  10. KETAMINE [Concomitant]
     Active Substance: KETAMINE
     Indication: PAIN
     Route: 061
  11. ENTYVIO [Concomitant]
     Active Substance: VEDOLIZUMAB
     Indication: CROHN^S DISEASE
     Route: 042
  12. PROMETHAZINE [Concomitant]
     Active Substance: PROMETHAZINE HYDROCHLORIDE
     Indication: CROHN^S DISEASE
     Dosage: 25.0MG AS REQUIRED
     Route: 048
  13. PREDNISONE. [Concomitant]
     Active Substance: PREDNISONE
     Indication: HYPERSENSITIVITY
     Dosage: 10 TO 30 MG AS REQUIRED
     Route: 048
  14. BENADRYL [Concomitant]
     Active Substance: DIPHENHYDRAMINE HYDROCHLORIDE
     Indication: HYPERSENSITIVITY
     Route: 048
  15. AZELASTINE HCL [Concomitant]
     Active Substance: AZELASTINE HYDROCHLORIDE
     Indication: HYPERSENSITIVITY
     Route: 045
  16. AZELASTINE. [Concomitant]
     Active Substance: AZELASTINE HYDROCHLORIDE
     Indication: HYPERSENSITIVITY
     Dosage: 0.5% AS REQUIRED
     Route: 047
  17. BREZTRI AEROSPHERE [Suspect]
     Active Substance: BUDESONIDE\FORMOTEROL\GLYCOPYRRONIUM
     Indication: DYSPNOEA
     Dosage: 160MCG/7.2MCG/4.8MCG, TWO TIMES A DAY
     Route: 055
     Dates: start: 20201130
  18. ZYRTEC [Concomitant]
     Active Substance: CETIRIZINE HYDROCHLORIDE
     Indication: HYPERSENSITIVITY
     Route: 048
  19. HORIZANT [Concomitant]
     Active Substance: GABAPENTIN ENACARBIL
     Indication: PAIN
     Route: 048

REACTIONS (29)
  - Clavicle fracture [Unknown]
  - Seizure [Not Recovered/Not Resolved]
  - Cardiac disorder [Unknown]
  - Brain neoplasm [Unknown]
  - Road traffic accident [Unknown]
  - Thyroid disorder [Not Recovered/Not Resolved]
  - Polycythaemia vera [Unknown]
  - Antiphospholipid antibodies [Unknown]
  - Hypothyroidism [Not Recovered/Not Resolved]
  - Tumour lysis syndrome [Not Recovered/Not Resolved]
  - Coagulopathy [Unknown]
  - Cerebral haemorrhage [Not Recovered/Not Resolved]
  - Pelvic fracture [Unknown]
  - Haematological malignancy [Unknown]
  - Factor V Leiden mutation [Unknown]
  - Dyspnoea [Recovering/Resolving]
  - Streptococcal sepsis [Unknown]
  - Myeloproliferative neoplasm [Unknown]
  - Product use issue [Unknown]
  - Device malfunction [Unknown]
  - Deep vein thrombosis [Unknown]
  - Haemorrhagic stroke [Unknown]
  - Crohn^s disease [Unknown]
  - Streptococcal infection [Unknown]
  - Epilepsy [Not Recovered/Not Resolved]
  - Intentional product misuse [Unknown]
  - Product dose omission issue [Unknown]
  - Wrong technique in device usage process [Unknown]
  - Drug ineffective [Unknown]

NARRATIVE: CASE EVENT DATE: 2017
